FAERS Safety Report 6015802-8 (Version None)
Quarter: 2008Q4

REPORT INFORMATION
  Report Type: 
  Country: None (occurrence: None)
  Receive Date: 20081216
  Receipt Date: 20071026
  Transmission Date: 20090506
  Serious: Yes (Death)
  Sender: FDA-Public Use
  Company Number: HQWYE486124OCT06

PATIENT
  Age: 27 Year
  Sex: Male
  Weight: 81.72 kg

DRUGS (15)
  1. EFFEXOR XR [Suspect]
  2. ACETAMINOPHEN [Suspect]
  3. ETHANOL (ETHANOL, ) [Suspect]
  4. PROPOXYPHENE (DEXTROPROPOXYPHENE, ) [Suspect]
  5. WELLBUTRIN XL [Suspect]
  6. LITHIUM CARBONATE [Concomitant]
  7. AMBIEN [Concomitant]
  8. XANAX [Concomitant]
  9. TRILEPTAL [Concomitant]
  10. ZOLOFT [Concomitant]
  11. RISPERDAL [Concomitant]
  12. LAMICTAL [Concomitant]
  13. DEPAKOTE [Concomitant]
  14. TEGRETOL [Concomitant]
  15. ZYPREXA [Concomitant]

REACTIONS (4)
  - COMPLETED SUICIDE [None]
  - DRUG INEFFECTIVE [None]
  - INTENTIONAL OVERDOSE [None]
  - SUICIDAL IDEATION [None]
